FAERS Safety Report 15639364 (Version 3)
Quarter: 2018Q4

REPORT INFORMATION
  Report Type: Spontaneous
  Country: US (occurrence: US)
  Receive Date: 20181120
  Receipt Date: 20181130
  Transmission Date: 20190205
  Serious: Yes (Hospitalization)
  Sender: FDA-Public Use
  Company Number: US-HORIZON-RAV-0179-2018

PATIENT
  Age: 12 Year
  Sex: Male

DRUGS (1)
  1. RAVICTI [Suspect]
     Active Substance: GLYCEROL PHENYLBUTYRATE
     Indication: ORNITHINE TRANSCARBAMOYLASE DEFICIENCY
     Dosage: 5.5 ML THREE TIMES DAILY WITH FORMULA. TOTAL DAILY DOSE 16.5 ML.
     Dates: start: 20140210

REACTIONS (5)
  - Vomiting projectile [Unknown]
  - Malabsorption [Recovered/Resolved]
  - Drug effect incomplete [Unknown]
  - Gastrointestinal bacterial overgrowth [Unknown]
  - Ammonia increased [Unknown]

NARRATIVE: CASE EVENT DATE: 20180918
